FAERS Safety Report 6143192-9 (Version None)
Quarter: 2009Q2

REPORT INFORMATION
  Report Type: 
  Country: None (occurrence: None)
  Receive Date: 20090403
  Receipt Date: 20040412
  Transmission Date: 20091009
  Serious: Yes (Death)
  Sender: FDA-Public Use
  Company Number: TR-ROCHE-360715

PATIENT
  Sex: Male
  Weight: 64 kg

DRUGS (22)
  1. DACLIZUMAB [Suspect]
     Dosage: LOADING DOSE.
     Route: 042
     Dates: start: 20040216
  2. DACLIZUMAB [Suspect]
     Dosage: MAINTENANCE DOSE.
     Route: 042
     Dates: start: 20040301
  3. MYCOPHENOLATE MOFETIL [Suspect]
     Route: 048
     Dates: start: 20040216
  4. SIROLIMUS [Suspect]
     Route: 048
     Dates: start: 20040216
  5. SIROLIMUS [Suspect]
     Route: 048
     Dates: start: 20040219
  6. SIROLIMUS [Suspect]
     Route: 048
     Dates: start: 20040222
  7. PREDNISOLONE [Suspect]
     Route: 042
     Dates: start: 20040216
  8. PREDNISOLONE [Suspect]
     Route: 042
     Dates: start: 20040217
  9. PREDNISOLONE [Suspect]
     Route: 048
     Dates: start: 20040218
  10. PREDNISOLONE [Suspect]
     Route: 048
     Dates: start: 20040219
  11. PREDNISOLONE [Suspect]
     Route: 048
     Dates: start: 20040220
  12. PREDNISOLONE [Suspect]
     Route: 048
     Dates: start: 20040221
  13. PREDNISOLONE [Suspect]
     Route: 048
     Dates: start: 20040222
  14. PREDNISOLONE [Suspect]
     Route: 048
     Dates: start: 20040223
  15. PREDNISOLONE [Suspect]
     Route: 048
     Dates: start: 20040224
  16. ACYCLOVIR [Concomitant]
     Route: 048
     Dates: start: 20040216
  17. ACYCLOVIR [Concomitant]
     Route: 048
     Dates: start: 20040217
  18. CEFAZOLIN [Concomitant]
     Route: 042
     Dates: start: 20040216, end: 20040220
  19. ISONIAZID [Concomitant]
     Route: 048
     Dates: start: 20040218
  20. ISONIAZID [Concomitant]
     Route: 048
     Dates: start: 20040224
  21. NYSTATINE [Concomitant]
     Route: 048
     Dates: start: 20040216
  22. SULFAMETHOXAZOLE AND TRIMETHOPRIM [Concomitant]
     Route: 048
     Dates: start: 20040216

REACTIONS (3)
  - HYPOVOLAEMIC SHOCK [None]
  - VENOUS HAEMORRHAGE [None]
  - WOUND INFECTION PSEUDOMONAS [None]
